FAERS Safety Report 16143438 (Version 1)
Quarter: 2019Q2

REPORT INFORMATION
  Report Type: Spontaneous
  Country: FR (occurrence: FR)
  Receive Date: 20190401
  Receipt Date: 20190401
  Transmission Date: 20190711
  Serious: Yes (Life-Threatening)
  Sender: FDA-Public Use
  Company Number: FR-TEVA-2019-FR-1030991

PATIENT
  Age: 53 Year
  Sex: Male
  Weight: 95 kg

DRUGS (4)
  1. ALPRAZOLAM. [Suspect]
     Active Substance: ALPRAZOLAM
     Indication: INTENTIONAL OVERDOSE
     Route: 048
     Dates: start: 20190227, end: 20190227
  2. EUPRESSYL 30 MG, G?LULE (URAPIDIL) [Suspect]
     Active Substance: URAPIDIL
     Indication: INTENTIONAL OVERDOSE
     Route: 048
     Dates: start: 20190227, end: 20190227
  3. COVERAM [Suspect]
     Active Substance: AMLODIPINE\PERINDOPRIL
     Indication: INTENTIONAL OVERDOSE
     Route: 048
     Dates: start: 20190227, end: 20190227
  4. DOLIPRANE [Suspect]
     Active Substance: ACETAMINOPHEN
     Indication: INTENTIONAL OVERDOSE
     Route: 048
     Dates: start: 20190227, end: 20190227

REACTIONS (4)
  - Poisoning deliberate [Recovered/Resolved]
  - Hypotension [Recovered/Resolved]
  - Somnolence [Recovered/Resolved]
  - Intentional overdose [None]

NARRATIVE: CASE EVENT DATE: 20190227
